FAERS Safety Report 9399253 (Version 1)
Quarter: 2013Q3

REPORT INFORMATION
  Report Type: Spontaneous
  Country: GB (occurrence: None)
  Receive Date: 20130709
  Receipt Date: 20130709
  Transmission Date: 20140515
  Serious: Yes (Hospitalization, Other)
  Sender: FDA-Public Use
  Company Number: 1780959

PATIENT
  Age: 11 Year
  Sex: Male

DRUGS (16)
  1. VINCRISTINE SULFATE [Suspect]
     Indication: NEOPLASM MALIGNANT
     Dates: start: 20111207
  2. DOXORUBICIN HYDROCHLORIDE [Suspect]
     Indication: NEOPLASM MALIGNANT
     Dates: start: 20111207
  3. ACTINOMYCIN D [Suspect]
     Indication: NEOPLASM MALIGNANT
     Dates: start: 20111207
  4. BEVACIZUMAB [Suspect]
     Indication: NEOPLASM MALIGNANT
     Dates: start: 20111207
  5. IFOSFAMIDE [Suspect]
     Indication: NEOPLASM MALIGNANT
     Dates: start: 20111207
  6. FENTANYL [Concomitant]
  7. ONDANSETRON [Concomitant]
  8. METOCLOPRAMIDE [Concomitant]
  9. INSULIN DETEMIA [Concomitant]
  10. CLOTRIMAZOLE [Concomitant]
  11. GELCLAIR [Concomitant]
  12. INSULIN ASPART [Concomitant]
  13. MORPHINE SULPHATE [Concomitant]
  14. TRIMETHOPRIM SULFAMETHOXAZOLE [Concomitant]
  15. OXYBUTYNIN [Concomitant]
  16. LANSOPRAZOLE [Concomitant]

REACTIONS (5)
  - Febrile neutropenia [None]
  - Clostridium difficile colitis [None]
  - Haemoglobin decreased [None]
  - Mucosal inflammation [None]
  - Balanoposthitis [None]
